FAERS Safety Report 6710557-3 (Version None)
Quarter: 2010Q2

REPORT INFORMATION
  Report Type: 
  Country: None (occurrence: None)
  Receive Date: 20100504
  Receipt Date: 20100420
  Transmission Date: 20101027
  Serious: Yes (Life-Threatening)
  Sender: FDA-Public Use
  Company Number: GB-BAUSCH-2010BL002082

PATIENT
  Age: 7 Year
  Sex: Male
  Weight: 30 kg

DRUGS (12)
  1. DEXAMETHASONE [Suspect]
     Indication: SURGERY
     Route: 042
  2. PARACETAMOL [Suspect]
     Indication: ANALGESIC THERAPY
     Route: 042
  3. ADRENALINE [Suspect]
     Indication: ANALGESIC THERAPY
     Route: 042
  4. ATRACURIUM BESYLATE [Suspect]
     Indication: ANAESTHESIA
     Route: 042
  5. BUPIVACAINE HCL [Suspect]
     Indication: ANALGESIC THERAPY
     Route: 042
  6. FENTANYL CITRATE [Suspect]
     Indication: ANAESTHESIA
     Route: 042
  7. MORPHINE [Suspect]
     Indication: ANALGESIC THERAPY
     Route: 042
  8. NITROUS OXIDE [Suspect]
     Indication: ANAESTHESIA
  9. ONDANSETRON [Suspect]
     Indication: SURGERY
     Route: 042
  10. PROPOFOL [Suspect]
     Indication: ANAESTHESIA
     Route: 042
  11. DESFLURANE [Suspect]
     Indication: ANAESTHESIA
  12. OXYGEN [Suspect]
     Indication: ANAESTHESIA

REACTIONS (1)
  - RESPIRATORY FAILURE [None]
